FAERS Safety Report 9744075 (Version 2)
Quarter: 2014Q1

REPORT INFORMATION
  Report Type: Spontaneous
  Country: FR (occurrence: FR)
  Receive Date: 20131210
  Receipt Date: 20140319
  Transmission Date: 20141002
  Serious: Yes (Death)
  Sender: FDA-Public Use
  Company Number: FR-GLAXOSMITHKLINE-B0949759A

PATIENT
  Age: 39 Year
  Sex: Female

DRUGS (7)
  1. LAMICTAL [Suspect]
     Indication: AFFECTIVE DISORDER
     Dosage: 25MG PER DAY
     Route: 048
     Dates: start: 20131108
  2. CYMBALTA [Suspect]
     Indication: PRODUCT USED FOR UNKNOWN INDICATION
     Dosage: 30MG PER DAY
     Route: 048
     Dates: start: 20131108
  3. NOCTAMIDE [Suspect]
     Indication: PRODUCT USED FOR UNKNOWN INDICATION
     Dosage: 2MG PER DAY
     Route: 048
  4. ALPRAZOLAM [Suspect]
     Indication: PRODUCT USED FOR UNKNOWN INDICATION
     Dosage: 2TAB THREE TIMES PER DAY
     Route: 048
  5. TERCIAN [Suspect]
     Indication: PRODUCT USED FOR UNKNOWN INDICATION
     Dosage: 25DROP PER DAY
     Route: 048
  6. MONOTILDIEM LP [Suspect]
     Indication: HYPERTENSION
     Dosage: 200MG PER DAY
     Route: 048
  7. DEPAMIDE [Concomitant]
     Indication: AFFECTIVE DISORDER
     Dosage: 300MG PER DAY
     Route: 048
     Dates: start: 201201, end: 20131108

REACTIONS (2)
  - Death [Fatal]
  - Malaise [Fatal]
